FAERS Safety Report 9870598 (Version 1)
Quarter: 2014Q1

REPORT INFORMATION
  Report Type: Spontaneous
  Country: US (occurrence: None)
  Receive Date: 20140204
  Receipt Date: 20140204
  Transmission Date: 20141002
  Serious: Yes (Other)
  Sender: FDA-Public Use
  Company Number: None

PATIENT
  Age: 58 Year
  Sex: Female
  Weight: 117.94 kg

DRUGS (1)
  1. IBUPROFEN [Suspect]
     Indication: OSTEOARTHRITIS
     Route: 048
     Dates: start: 20130131, end: 20131231

REACTIONS (6)
  - Palmar erythema [None]
  - Erythema [None]
  - Rash pruritic [None]
  - Skin exfoliation [None]
  - Haemorrhage [None]
  - Gingival bleeding [None]
